FAERS Safety Report 9773571 (Version 2)
Quarter: 2014Q1

REPORT INFORMATION
  Report Type: Spontaneous
  Country: GB (occurrence: None)
  Receive Date: 20131217
  Receipt Date: 20140102
  Transmission Date: 20141002
  Serious: Yes (Hospitalization, Other)
  Sender: FDA-Public Use
  Company Number: AUR-APL-2013-10542

PATIENT
  Age: 13 Year
  Sex: Female

DRUGS (2)
  1. BISOPROLOL (BISOPROLOL) [Suspect]
     Indication: PRODUCT USED FOR UNKNOWN INDICATION
  2. FLECAINIDE [Suspect]
     Indication: PRODUCT USED FOR UNKNOWN INDICATION

REACTIONS (5)
  - Overdose [None]
  - Atrioventricular block complete [None]
  - Ventricular tachycardia [None]
  - Electrocardiogram QRS complex prolonged [None]
  - Brugada syndrome [None]
